FAERS Safety Report 23889795 (Version 1)
Quarter: 2024Q2

REPORT INFORMATION
  Report Type: Spontaneous
  Country: US (occurrence: None)
  Receive Date: 20240523
  Receipt Date: 20240523
  Transmission Date: 20240716
  Serious: Yes (Life-Threatening)
  Sender: FDA-Public Use
  Company Number: None

PATIENT
  Age: 77 Year
  Sex: Female
  Weight: 68.04 kg

DRUGS (4)
  1. LEVOFLOXACIN [Suspect]
     Active Substance: LEVOFLOXACIN
     Indication: Pneumonia
     Dosage: FREQUENCY : DAILY;?
     Route: 048
     Dates: start: 20240425, end: 20240425
  2. CELEBREX [Concomitant]
     Active Substance: CELECOXIB
  3. ALLEGRA [Concomitant]
     Active Substance: FEXOFENADINE HYDROCHLORIDE
  4. TYLENOL [Concomitant]
     Active Substance: ACETAMINOPHEN

REACTIONS (9)
  - Agitation [None]
  - Feeling abnormal [None]
  - Tinnitus [None]
  - Fatigue [None]
  - Insomnia [None]
  - Vision blurred [None]
  - Balance disorder [None]
  - Gait disturbance [None]
  - Eating disorder [None]

NARRATIVE: CASE EVENT DATE: 20240425
